FAERS Safety Report 6707310-3 (Version None)
Quarter: 2010Q2

REPORT INFORMATION
  Report Type: 
  Country: None (occurrence: None)
  Receive Date: 20100503
  Receipt Date: 20091113
  Transmission Date: 20101027
  Serious: No
  Sender: FDA-Public Use
  Company Number: US-ASTRAZENECA-2009SE26323

PATIENT
  Age: 42 Year
  Sex: Female

DRUGS (4)
  1. NEXIUM [Suspect]
     Indication: REFLUX OESOPHAGITIS
     Route: 048
  2. PRILOSEC [Concomitant]
  3. PREVACID [Concomitant]
  4. ZANTAC [Concomitant]

REACTIONS (2)
  - APHONIA [None]
  - DRUG INEFFECTIVE [None]
